FAERS Safety Report 7246464-X (Version None)
Quarter: 2011Q1

REPORT INFORMATION
  Report Type: 
  Country: None (occurrence: None)
  Receive Date: 20110126
  Receipt Date: 20101130
  Transmission Date: 20110831
  Serious: No
  Sender: FDA-Public Use
  Company Number: US-MYLANLABS-2010S1021987

PATIENT
  Age: 35 Year
  Sex: Female

DRUGS (4)
  1. MINOCYCLINE HCL [Suspect]
     Indication: ACNE
     Route: 048
     Dates: start: 20101104, end: 20101107
  2. TRIAMTEREEN/HYDROCHLOORTHIAZIDE A [Concomitant]
     Indication: OEDEMA
     Route: 048
  3. DUAC [Concomitant]
     Indication: ACNE
     Route: 048
  4. RETIN-A [Concomitant]
     Indication: ACNE
     Route: 048

REACTIONS (6)
  - SKIN DISCOLOURATION [None]
  - FATIGUE [None]
  - NAUSEA [None]
  - CHEILITIS [None]
  - CHROMATURIA [None]
  - ASTHENIA [None]
